FAERS Safety Report 5473726-9 (Version None)
Quarter: 2007Q4

REPORT INFORMATION
  Report Type: 
  Country: None (occurrence: None)
  Receive Date: 20071001
  Receipt Date: 20070919
  Transmission Date: 20080405
  Serious: Yes (Hospitalization, Other)
  Sender: FDA-Public Use
  Company Number: ES-PFIZER INC-2007073718

PATIENT
  Sex: Male
  Weight: 80 kg

DRUGS (2)
  1. SUTENT [Suspect]
     Indication: RENAL CELL CARCINOMA STAGE UNSPECIFIED
     Route: 048
  2. OPENVAS [Concomitant]
     Route: 048

REACTIONS (1)
  - GUILLAIN-BARRE SYNDROME [None]
